FAERS Safety Report 8232919-8 (Version None)
Quarter: 2012Q1

REPORT INFORMATION
  Report Type: 
  Country: None (occurrence: None)
  Receive Date: 20120325
  Receipt Date: 20120313
  Transmission Date: 20120608
  Serious: Yes (Other)
  Sender: FDA-Public Use
  Company Number: GR-AMGEN-GRCSP2011037848

PATIENT
  Sex: Female

DRUGS (1)
  1. ENBREL [Suspect]
     Indication: RHEUMATOID ARTHRITIS
     Dosage: 50 MG, UNK
     Route: 058
     Dates: start: 20110721, end: 20120201

REACTIONS (6)
  - BREATH SOUNDS ABNORMAL [None]
  - DYSPNOEA [None]
  - PSORIATIC ARTHROPATHY [None]
  - ABDOMINAL DISTENSION [None]
  - LABORATORY TEST ABNORMAL [None]
  - RASH [None]
